FAERS Safety Report 6174747-3 (Version None)
Quarter: 2009Q2

REPORT INFORMATION
  Report Type: 
  Country: None (occurrence: None)
  Receive Date: 20090430
  Receipt Date: 20080910
  Transmission Date: 20091009
  Serious: No
  Sender: FDA-Public Use
  Company Number: US-ASTRAZENECA-2008UW18849

PATIENT
  Age: 54 Year
  Sex: Female
  Weight: 68 kg

DRUGS (9)
  1. NEXIUM [Suspect]
     Indication: GASTROOESOPHAGEAL REFLUX DISEASE
     Route: 048
  2. CELEBREX [Concomitant]
  3. VERAPAMIL [Concomitant]
  4. DYAZIDE [Concomitant]
  5. LYRICA [Concomitant]
  6. SINGULAIR [Concomitant]
  7. SOMA [Concomitant]
  8. MISOPROSTOL (STARTED IN JULY) [Concomitant]
  9. OXYCONTIN [Concomitant]

REACTIONS (2)
  - AGEUSIA [None]
  - ANOSMIA [None]
